FAERS Safety Report 14843297 (Version 1)
Quarter: 2018Q2

REPORT INFORMATION
  Report Type: Spontaneous
  Country: US (occurrence: US)
  Receive Date: 20180418
  Receipt Date: 20180418
  Transmission Date: 20180711
  Serious: Yes (Hospitalization)
  Sender: FDA-Public Use
  Company Number: None

PATIENT
  Age: 14 Year
  Sex: Male

DRUGS (6)
  1. OPSUMIT [Suspect]
     Active Substance: MACITENTAN
     Indication: PULMONARY ARTERIAL HYPERTENSION
     Route: 048
     Dates: start: 201712
  2. IBUPROFEN. [Concomitant]
     Active Substance: IBUPROFEN
  3. FUROSEMIDE. [Concomitant]
     Active Substance: FUROSEMIDE
  4. UPTRAVI [Concomitant]
     Active Substance: SELEXIPAG
  5. SILDENAFIL. [Concomitant]
     Active Substance: SILDENAFIL
  6. ASPIRIN. [Concomitant]
     Active Substance: ASPIRIN

REACTIONS (3)
  - Hypoxia [None]
  - Pneumonia [None]
  - Upper respiratory tract infection [None]

NARRATIVE: CASE EVENT DATE: 20180416
